FAERS Safety Report 7584396-8 (Version None)
Quarter: 2011Q2

REPORT INFORMATION
  Report Type: 
  Country: None (occurrence: None)
  Receive Date: 20110630
  Receipt Date: 20110621
  Transmission Date: 20111010
  Serious: Yes (Other)
  Sender: FDA-Public Use
  Company Number: IE-UCBSA-035900

PATIENT

DRUGS (3)
  1. CELLCEPT [Suspect]
  2. KEPPRA [Suspect]
  3. TEGRETOL [Suspect]

REACTIONS (1)
  - CONVULSION [None]
